FAERS Safety Report 9632717 (Version 2)
Quarter: 2013Q4

REPORT INFORMATION
  Report Type: Report from Study
  Country: US (occurrence: US)
  Receive Date: 20131018
  Receipt Date: 20131216
  Transmission Date: 20140711
  Serious: Yes (Hospitalization)
  Sender: FDA-Public Use
  Company Number: US-US-EMD SERONO, INC.-7243814

PATIENT
  Age: 35 Year
  Sex: Female

DRUGS (3)
  1. REBIF [Suspect]
     Indication: MULTIPLE SCLEROSIS
     Route: 058
     Dates: start: 20091203, end: 20100622
  2. REBIF [Suspect]
     Route: 058
     Dates: start: 20101215, end: 20111223
  3. REBIF [Suspect]
     Route: 058
     Dates: start: 20130718

REACTIONS (4)
  - Pneumonia [Recovering/Resolving]
  - Pneumothorax [Unknown]
  - Influenza like illness [Unknown]
  - Inappropriate schedule of drug administration [Unknown]
